FAERS Safety Report 9618367 (Version 1)
Quarter: 2013Q4

REPORT INFORMATION
  Report Type: Spontaneous
  Country: CA (occurrence: CA)
  Receive Date: 20131014
  Receipt Date: 20131014
  Transmission Date: 20140711
  Serious: Yes (Other)
  Sender: FDA-Public Use
  Company Number: CA-ROCHE-1287704

PATIENT
  Age: 67 Year
  Sex: Female
  Weight: 114 kg

DRUGS (6)
  1. NAPROXEN [Suspect]
     Indication: PRODUCT USED FOR UNKNOWN INDICATION
     Route: 065
  2. FRAGMIN [Suspect]
     Indication: PRODUCT USED FOR UNKNOWN INDICATION
     Dosage: THERAPY DURATION: 69.0 DAYS
     Route: 051
  3. FRAGMIN [Suspect]
     Dosage: THERAPY DURATION: 12.0 DAYS
     Route: 051
  4. METHOTREXATE [Concomitant]
  5. ENBREL [Concomitant]
     Route: 058
  6. FOLIC ACID [Concomitant]
     Route: 065

REACTIONS (3)
  - Injection site bruising [Not Recovered/Not Resolved]
  - Injection site mass [Not Recovered/Not Resolved]
  - Rectal haemorrhage [Not Recovered/Not Resolved]
